FAERS Safety Report 10665192 (Version 1)
Quarter: 2014Q4

REPORT INFORMATION
  Report Type: Spontaneous
  Country: FR (occurrence: FR)
  Receive Date: 20141219
  Receipt Date: 20141219
  Transmission Date: 20150529
  Serious: Yes (Hospitalization)
  Sender: FDA-Public Use
  Company Number: FR-ASTRAZENECA-2014SE96669

PATIENT
  Age: 33526 Day
  Sex: Female

DRUGS (7)
  1. TENORMIN [Suspect]
     Active Substance: ATENOLOL
     Indication: HYPERTENSION
     Route: 048
     Dates: end: 20141112
  2. ANTI-DIABETIC [Concomitant]
     Route: 048
  3. AMLOR [Concomitant]
     Active Substance: AMLODIPINE BESYLATE
     Indication: HYPERTENSION
     Route: 048
  4. ATACAND [Concomitant]
     Active Substance: CANDESARTAN CILEXETIL
     Indication: HYPERTENSION
     Route: 048
  5. KARDEGIC [Concomitant]
     Active Substance: ASPIRIN LYSINE
     Route: 048
     Dates: end: 20141117
  6. XARELTO [Concomitant]
     Active Substance: RIVAROXABAN
     Route: 048
     Dates: end: 20141117
  7. SALAZOPYRINE [Concomitant]
     Active Substance: SULFASALAZINE

REACTIONS (5)
  - Dyspnoea at rest [Unknown]
  - Fall [Unknown]
  - Crepitations [Unknown]
  - Bradycardia [Recovered/Resolved]
  - Cardiac failure [Unknown]

NARRATIVE: CASE EVENT DATE: 20141111
